FAERS Safety Report 26133950 (Version 1)
Quarter: 2025Q4

REPORT INFORMATION
  Report Type: Spontaneous
  Country: EU (occurrence: EU)
  Receive Date: 20251209
  Receipt Date: 20251209
  Transmission Date: 20260119
  Serious: Yes (Death)
  Sender: ROCHE
  Company Number: EU-ROCHE-10000426555

PATIENT
  Age: 63 Year
  Sex: Female

DRUGS (3)
  1. LUNSUMIO [Suspect]
     Active Substance: MOSUNETUZUMAB-AXGB
     Indication: Follicular lymphoma
     Route: 042
  2. DEXAMETHASONE [Concomitant]
     Active Substance: DEXAMETHASONE
     Indication: Premedication
     Route: 048
     Dates: start: 20250930, end: 20251111
  3. ACETAMINOPHEN [Concomitant]
     Active Substance: ACETAMINOPHEN
     Indication: Premedication
     Route: 048
     Dates: start: 20250930, end: 20251111

REACTIONS (5)
  - Dry skin [Not Recovered/Not Resolved]
  - Rash erythematous [Recovered/Resolved]
  - Skin exfoliation [Recovered/Resolved]
  - Cytokine release syndrome [Fatal]
  - Pneumonitis chemical [Fatal]

NARRATIVE: CASE EVENT DATE: 20251014
